FAERS Safety Report 4761646-4 (Version None)
Quarter: 2005Q3

REPORT INFORMATION
  Report Type: 
  Country: None (occurrence: None)
  Receive Date: 20050906
  Receipt Date: 20050825
  Transmission Date: 20060218
  Serious: Yes (Hospitalization)
  Sender: FDA-Public Use
  Company Number: FR-SANOFI-SYNTHELABO-A02200502270

PATIENT
  Age: 78 Year
  Sex: Male
  Weight: 80 kg

DRUGS (14)
  1. PLAVIX [Suspect]
     Route: 048
  2. KARDEGIC [Suspect]
     Route: 048
  3. CLONAZEPAM [Suspect]
     Indication: HEADACHE
     Route: 048
     Dates: start: 20050706, end: 20050709
  4. ALLOPURINOL [Suspect]
     Indication: GOUT
     Route: 048
  5. OMEPRAZOLE [Suspect]
     Route: 048
  6. ZOCOR [Suspect]
     Route: 048
  7. MIXTARD HUMAN 70/30 [Suspect]
     Indication: DIABETES MELLITUS
     Dosage: UNK
     Route: 065
  8. PRAXILENE [Suspect]
     Dosage: 600 MG
     Route: 048
  9. AMLOR [Suspect]
     Dosage: 10 MG
     Route: 048
  10. CORVASAL [Suspect]
     Dosage: 3 UNIT
     Route: 048
  11. ODRIK [Suspect]
     Dosage: 2 UNIT
     Route: 048
  12. LASIX [Suspect]
     Route: 048
  13. DETENSIEL [Suspect]
     Indication: ESSENTIAL HYPERTENSION
     Route: 048
  14. DETENSIEL [Suspect]
     Indication: CORONARY ARTERY DISEASE
     Route: 048

REACTIONS (3)
  - CHILLS [None]
  - HOT FLUSH [None]
  - HYPERHIDROSIS [None]
